FAERS Safety Report 10270928 (Version 1)
Quarter: 2014Q3

REPORT INFORMATION
  Report Type: Spontaneous
  Country: GB (occurrence: GB)
  Receive Date: 20140701
  Receipt Date: 20140701
  Transmission Date: 20150326
  Serious: Yes (Other)
  Sender: FDA-Public Use
  Company Number: GB-TEVA-491047ISR

PATIENT
  Age: 73 Year
  Sex: Male

DRUGS (4)
  1. COCODAMOL [Interacting]
     Active Substance: ACETAMINOPHEN\CODEINE PHOSPHATE
     Indication: MUSCLE SPASMS
     Dosage: 30/500 MG
     Route: 048
     Dates: start: 20140411
  2. DIAZEPAM. [Suspect]
     Active Substance: DIAZEPAM
     Indication: MUSCLE SPASMS
     Dosage: 10 MILLIGRAM DAILY;
     Route: 048
     Dates: start: 20140411
  3. MOXONIDINE [Interacting]
     Active Substance: MOXONIDINE
     Indication: PRODUCT USED FOR UNKNOWN INDICATION
  4. PIROXICAM. [Concomitant]
     Active Substance: PIROXICAM
     Indication: MUSCLE SPASMS
     Route: 061
     Dates: start: 20140411

REACTIONS (2)
  - Syncope [Unknown]
  - Drug interaction [Unknown]

NARRATIVE: CASE EVENT DATE: 20140411
